FAERS Safety Report 10185752 (Version 1)
Quarter: 2014Q2

REPORT INFORMATION
  Report Type: Spontaneous
  Country: US (occurrence: US)
  Receive Date: 20140521
  Receipt Date: 20140521
  Transmission Date: 20141212
  Serious: Yes (Other)
  Sender: FDA-Public Use
  Company Number: US-BAYER-2014-075333

PATIENT
  Age: 32 Year
  Sex: Female

DRUGS (9)
  1. YAZ [Suspect]
  2. PERCOCET [Concomitant]
     Dosage: UNK
     Dates: start: 20110915
  3. STOOL SOFTENER [Concomitant]
     Dosage: UNK
     Dates: start: 20110915
  4. IBUPROFEN [Concomitant]
     Dosage: UNK
     Dates: start: 20110915
  5. HYDROCODONE W/ACETAMINOPHEN [Concomitant]
     Dosage: UNK
     Dates: start: 20110915
  6. FLEXERIL [Concomitant]
     Dosage: UNK
     Dates: start: 20110915
  7. KETOROLAC [Concomitant]
     Dosage: UNK
     Dates: start: 20110915
  8. PRENATAL VITAMINS [VIT C,B5,B12,D2,B3,B6,RETINOL PALMIT,B2,B1 MONO [Concomitant]
  9. DILAUDID [Concomitant]

REACTIONS (1)
  - Deep vein thrombosis [Recovered/Resolved]
